FAERS Safety Report 6589539-0 (Version None)
Quarter: 2010Q1

REPORT INFORMATION
  Report Type: 
  Country: None (occurrence: None)
  Receive Date: 20100212
  Receipt Date: 20091222
  Transmission Date: 20100710
  Serious: Yes (Other)
  Sender: FDA-Public Use
  Company Number: 2009-00112

PATIENT
  Age: 11 Year
  Sex: Male
  Weight: 55 kg

DRUGS (4)
  1. ETHAMBUTOL HYDROCHLORIDE [Suspect]
     Indication: LYMPH NODE TUBERCULOSIS
     Dosage: 800 MG, 1 D
  2. ISONIAZID [Suspect]
     Indication: LYMPH NODE TUBERCULOSIS
     Dosage: 300 MG, 1 D
  3. RIFAMPICIN [Suspect]
     Indication: LYMPH NODE TUBERCULOSIS
     Dosage: 600 MG, 1 D
  4. PYRAZINAMIDE [Suspect]
     Indication: LYMPH NODE TUBERCULOSIS
     Dosage: 2 GM, 1 D

REACTIONS (5)
  - CONDITION AGGRAVATED [None]
  - LYMPHADENOPATHY [None]
  - PARADOXICAL DRUG REACTION [None]
  - PURULENCE [None]
  - ULCER [None]
